FAERS Safety Report 23220376 (Version 1)
Quarter: 2023Q4

REPORT INFORMATION
  Report Type: Spontaneous
  Country: FR (occurrence: FR)
  Receive Date: 20231123
  Receipt Date: 20231123
  Transmission Date: 20240110
  Serious: Yes (Hospitalization)
  Sender: FDA-Public Use
  Company Number: FR-ALKEM LABORATORIES LIMITED-US-ALKEM-2023-13765

PATIENT
  Age: 25 Day

DRUGS (2)
  1. CLOBAZAM [Suspect]
     Active Substance: CLOBAZAM
     Indication: Product used for unknown indication
     Dosage: UNK
     Route: 063
  2. LEVETIRACETAM [Suspect]
     Active Substance: LEVETIRACETAM
     Indication: Product used for unknown indication
     Dosage: 3000 MILLIGRAM
     Route: 063

REACTIONS (4)
  - Weight decreased [Recovering/Resolving]
  - Sedation [Recovering/Resolving]
  - Vomiting [Recovering/Resolving]
  - Exposure via breast milk [Unknown]
